FAERS Safety Report 25838497 (Version 1)
Quarter: 2025Q3

REPORT INFORMATION
  Report Type: Other
  Country: EU (occurrence: EU)
  Receive Date: 20250923
  Receipt Date: 20250923
  Transmission Date: 20251020
  Serious: Yes (Other)
  Sender: KOWA PHARM
  Company Number: None

PATIENT

DRUGS (2)
  1. PITAVASTATIN [Suspect]
     Active Substance: PITAVASTATIN
     Indication: Blood cholesterol increased
     Dosage: UNA PASTILLA POR LA NOCHE, TODOS LOS DIAS
     Route: 048
     Dates: start: 20240912
  2. EZETIMIBE [Concomitant]
     Active Substance: EZETIMIBE
     Indication: Blood cholesterol increased
     Dosage: 1 DF, QD (UN COMPRIMIDO DIARIO)
     Dates: start: 20250818

REACTIONS (1)
  - Tendonitis [Not Recovered/Not Resolved]

NARRATIVE: CASE EVENT DATE: 20241001
